FAERS Safety Report 10884257 (Version 1)
Quarter: 2015Q1

REPORT INFORMATION
  Report Type: Spontaneous
  Country: US (occurrence: None)
  Receive Date: 20150226
  Receipt Date: 20150226
  Transmission Date: 20150721
  Serious: Yes (Hospitalization)
  Sender: FDA-Public Use
  Company Number: None

PATIENT
  Age: 80 Year
  Sex: Male
  Weight: 73.1 kg

DRUGS (1)
  1. OXYBUTYNIN [Suspect]
     Active Substance: OXYBUTYNIN
     Indication: MICTURITION URGENCY
     Dosage: 1 UNITS, OTHER, TOP
     Route: 061
     Dates: start: 20140812, end: 20150207

REACTIONS (1)
  - Delirium [None]

NARRATIVE: CASE EVENT DATE: 20150210
